FAERS Safety Report 19216283 (Version 1)
Quarter: 2021Q2

REPORT INFORMATION
  Report Type: Spontaneous
  Country: US (occurrence: US)
  Receive Date: 20210504
  Receipt Date: 20210504
  Transmission Date: 20210717
  Serious: Yes (Life-Threatening, Hospitalization, Disabling)
  Sender: FDA-Public Use
  Company Number: None

PATIENT
  Sex: Female
  Weight: 58.5 kg

DRUGS (2)
  1. MULTIHANCE [Suspect]
     Active Substance: GADOBENATE DIMEGLUMINE
     Dosage: INJECTED FOR MRI
     Dates: start: 20150201, end: 20170731
  2. MAGNEVIST [Suspect]
     Active Substance: GADOPENTETATE DIMEGLUMINE
     Indication: BREAST CANCER
     Dosage: ?          OTHER FREQUENCY:INJECTED FOR MRI;?
     Route: 042
     Dates: start: 20150201, end: 20170731

REACTIONS (14)
  - Feeling abnormal [None]
  - Gastrointestinal necrosis [None]
  - Cardiac disorder [None]
  - Victim of sexual abuse [None]
  - Thinking abnormal [None]
  - Gadolinium deposition disease [None]
  - Documented hypersensitivity to administered product [None]
  - Large intestinal obstruction [None]
  - Lung neoplasm malignant [None]
  - Cognitive disorder [None]
  - Anger [None]
  - Disability [None]
  - Ataxia [None]
  - Blood heavy metal increased [None]
